FAERS Safety Report 8921258 (Version 1)
Quarter: 2012Q4

REPORT INFORMATION
  Report Type: 
  Country: US (occurrence: US)
  Receive Date: 20121121
  Receipt Date: 20121121
  Transmission Date: 20130627
  Serious: Yes (Other)
  Sender: FDA-Public Use
  Company Number: US-BRISTOL-MYERS SQUIBB COMPANY-17109562

PATIENT
  Age: 11 Year
  Sex: Male

DRUGS (2)
  1. ABILIFY [Suspect]
     Indication: MENTAL RETARDATION
     Dates: start: 2010
  2. ABILIFY [Suspect]
     Indication: AUTISM
     Dates: start: 2010

REACTIONS (2)
  - Mental disorder [Unknown]
  - Economic problem [None]
